FAERS Safety Report 4294655-2 (Version None)
Quarter: 2004Q1

REPORT INFORMATION
  Report Type: 
  Country: None (occurrence: None)
  Receive Date: 20040213
  Receipt Date: 20031219
  Transmission Date: 20041129
  Serious: Yes (Other)
  Sender: FDA-Public Use
  Company Number: US-GLAXOSMITHKLINE-A0490950A

PATIENT
  Age: 49 Year
  Sex: Female
  Weight: 98.6 kg

DRUGS (4)
  1. IMITREX [Suspect]
     Indication: MIGRAINE
     Dosage: 50MG AS REQUIRED
     Route: 048
  2. AMERGE [Suspect]
     Indication: MIGRAINE
     Route: 048
  3. DICLOFENAC [Concomitant]
     Dosage: 75MG TWICE PER DAY
     Route: 065
  4. LOPERAMIDE HCL [Concomitant]
     Route: 065

REACTIONS (3)
  - DIZZINESS POSTURAL [None]
  - DRUG INEFFECTIVE [None]
  - SYNCOPE [None]
